FAERS Safety Report 6709541-5 (Version None)
Quarter: 2010Q2

REPORT INFORMATION
  Report Type: 
  Country: None (occurrence: None)
  Receive Date: 20100504
  Receipt Date: 20100426
  Transmission Date: 20101027
  Serious: Yes (Other)
  Sender: FDA-Public Use
  Company Number: GB-ASTRAZENECA-2010SE13556

PATIENT
  Age: 16 Day
  Sex: Female

DRUGS (7)
  1. PROPOFOL [Suspect]
     Indication: ENDOTRACHEAL INTUBATION
     Route: 042
     Dates: start: 20100316, end: 20100316
  2. MORPHINE SULFATE [Concomitant]
  3. CAFFEINE CITRATE [Concomitant]
  4. CEFTAZIDIME PENTAHYDRATE [Concomitant]
  5. METRONIDAZOLE [Concomitant]
  6. MIDAZOLAM HCL [Concomitant]
     Indication: SEDATION
  7. VANCOMYCIN [Concomitant]

REACTIONS (2)
  - MUSCLE TWITCHING [None]
  - OXYGEN SATURATION ABNORMAL [None]
